FAERS Safety Report 7299354-0 (Version None)
Quarter: 2011Q1

REPORT INFORMATION
  Report Type: 
  Country: None (occurrence: None)
  Receive Date: 20110217
  Receipt Date: 20110208
  Transmission Date: 20110831
  Serious: Yes (Other)
  Sender: FDA-Public Use
  Company Number: A0912496A

PATIENT
  Sex: Male

DRUGS (6)
  1. VERAMYST [Suspect]
     Route: 045
     Dates: start: 20110202, end: 20110205
  2. CLARITIN [Concomitant]
  3. ASTELIN [Concomitant]
  4. ADVAIR [Concomitant]
  5. BENADRYL [Concomitant]
  6. UNSPECIFIED MEDICATION [Concomitant]
     Indication: SPINAL CORD INJURY

REACTIONS (5)
  - BRONCHOSPASM [None]
  - VERTIGO [None]
  - BRONCHITIS [None]
  - ASTHMA [None]
  - SINUSITIS [None]
